FAERS Safety Report 9354624 (Version 2)
Quarter: 2013Q3

REPORT INFORMATION
  Report Type: Report from Study
  Country: JP (occurrence: JP)
  Receive Date: 20130618
  Receipt Date: 20130709
  Transmission Date: 20140515
  Serious: Yes (Death, Other)
  Sender: FDA-Public Use
  Company Number: JP-OTSUKA-JP-2013-12068

PATIENT
  Age: 75 Year
  Sex: Female
  Weight: 47.6 kg

DRUGS (33)
  1. SAMSCA [Suspect]
     Dosage: 15 MG MILLIGRAM(S), QAM
     Route: 048
     Dates: start: 20130303, end: 20130303
  2. LASIX [Suspect]
     Indication: CARDIAC FAILURE
     Dosage: 40 MG MILLIGRAM(S), DAILY DOSE
     Route: 048
     Dates: end: 20130220
  3. LASIX [Suspect]
     Dosage: 20 MG MILLIGRAM(S), DAILY DOSE
     Route: 048
     Dates: start: 20130221, end: 20130224
  4. LASIX [Suspect]
     Dosage: 40 MG MILLIGRAM(S), DAILY DOSE
     Route: 048
     Dates: start: 20130225, end: 20130228
  5. LASIX [Suspect]
     Indication: CARDIAC FAILURE
     Dosage: 40 MG MILLIGRAM(S), DAILY DOSE
     Route: 042
     Dates: start: 20130227, end: 20130227
  6. LASIX [Suspect]
     Dosage: 80 MG MILLIGRAM(S), DAILY DOSE
     Route: 042
     Dates: start: 20130228, end: 20130228
  7. LASIX [Suspect]
     Dosage: 60 MG MILLIGRAM(S), DAILY DOSE
     Route: 042
     Dates: start: 20130301, end: 20130301
  8. LASIX [Suspect]
     Dosage: 80 MG MILLIGRAM(S), DAILY DOSE
     Route: 042
     Dates: start: 20130302, end: 20130303
  9. LASIX [Suspect]
     Dosage: 120 MG MILLIGRAM(S), DAILY DOSE
     Route: 042
     Dates: start: 20130304, end: 20130304
  10. OMEPRAZOLE [Concomitant]
     Indication: PROPHYLAXIS
     Dosage: 10 MG MILLIGRAM(S), DAILY DOSE
     Route: 048
     Dates: end: 20130224
  11. NEUTROGIN [Concomitant]
     Dosage: 100 MCG, DAILY DOSE
     Route: 058
     Dates: start: 20130219, end: 20130221
  12. CRAVIT [Concomitant]
     Dosage: 250 MG MILLIGRAM(S), DAILY DOSE
     Route: 048
     Dates: start: 20130219, end: 20130224
  13. TALION [Concomitant]
     Dosage: 20 MG MILLIGRAM(S), DAILY DOSE
     Route: 048
     Dates: start: 20130219, end: 20130227
  14. GRACEVIT [Concomitant]
     Dosage: 100 MG MILLIGRAM(S), DAILY DOSE
     Route: 048
     Dates: start: 20130225, end: 20130225
  15. GRACEVIT [Concomitant]
     Dosage: 200 MG MILLIGRAM(S), DAILY DOSE
     Route: 048
     Dates: start: 20130226, end: 20130301
  16. GRACEVIT [Concomitant]
     Dosage: 100 MG MILLIGRAM(S), DAILY DOSE
     Route: 048
     Dates: start: 20130302, end: 20130302
  17. NEXIUM [Concomitant]
     Indication: PROPHYLAXIS
     Dosage: 10 MG MILLIGRAM(S), DAILY DOSE
     Route: 048
     Dates: start: 20130225, end: 20130227
  18. ZOSYN [Concomitant]
     Dosage: 9 G GRAM(S), DAILY DOSE
     Route: 042
     Dates: start: 20130226, end: 20130226
  19. ZOSYN [Concomitant]
     Dosage: 12.5 G GRAM(S), DAILY DOSE
     Route: 042
     Dates: start: 20130227, end: 20130311
  20. ACMALT [Concomitant]
     Dosage: 500 ML MILLILITRE(S), DAILY DOSE
     Route: 042
     Dates: start: 20130226, end: 20130226
  21. SANGLOPOR [Concomitant]
     Dosage: 5 G GRAM(S), DAILY DOSE
     Route: 042
     Dates: start: 20130226, end: 20130228
  22. SELARA [Concomitant]
     Indication: CARDIAC FAILURE
     Dosage: 50 MG MILLIGRAM(S), DAILY DOSE
     Route: 048
     Dates: start: 20130227, end: 20130228
  23. DORNER [Concomitant]
     Dosage: 40 MCG, DAILY DOSE
     Route: 048
     Dates: start: 20130227, end: 20130228
  24. GLUCOSE [Concomitant]
     Indication: BLOOD CREATININE INCREASED
     Dosage: 1000 ML MILLILITRE(S), DAILY DOSE
     Route: 042
     Dates: start: 20130227, end: 20130228
  25. GLUCOSE [Concomitant]
     Indication: RENAL IMPAIRMENT
     Dosage: 500 ML MILLILITRE(S), DAILY DOSE
     Route: 042
     Dates: start: 20130301, end: 20130303
  26. GLUCOSE [Concomitant]
     Dosage: 1000 ML MILLILITRE(S), DAILY DOSE
     Route: 042
     Dates: start: 20130304, end: 20130305
  27. GLUCOSE [Concomitant]
     Dosage: UNK
     Route: 042
  28. NEOLAMIN 3B [Concomitant]
     Indication: PROPHYLAXIS
     Dosage: 10 ML MILLILITRE(S), DAILY DOSE
     Route: 042
     Dates: start: 20130227, end: 20130307
  29. ALBUMIN [Concomitant]
     Dosage: 5 G GRAM(S), DAILY DOSE
     Route: 042
     Dates: start: 20130228, end: 20130302
  30. METHYLPREDNISOLONE [Concomitant]
     Dosage: 125 MG MILLIGRAM(S), DAILY DOSE
     Route: 042
     Dates: start: 20130228, end: 20130303
  31. VENECTOMIN [Concomitant]
     Indication: CARDIAC FAILURE
     Dosage: 200 MG MILLIGRAM(S), DAILY DOSE
     Route: 042
     Dates: start: 20130228, end: 20130304
  32. RANITIDINE [Concomitant]
     Indication: PROPHYLAXIS
     Dosage: 100 MG MILLIGRAM(S), DAILY DOSE
     Route: 042
     Dates: start: 20130228, end: 20130318
  33. SAMSCA [Suspect]
     Indication: FLUID RETENTION
     Dosage: 7.5 MG MILLIGRAM(S), QAM
     Route: 048
     Dates: start: 20130228, end: 20130302

REACTIONS (6)
  - Blood sodium increased [Recovered/Resolved]
  - Blood urea increased [Recovered/Resolved]
  - Blood creatinine increased [Recovered/Resolved]
  - Blood uric acid increased [Recovered/Resolved]
  - Lymphoma [Fatal]
  - Renal impairment [Recovered/Resolved]
